FAERS Safety Report 6905673-7 (Version None)
Quarter: 2010Q3

REPORT INFORMATION
  Report Type: 
  Country: None (occurrence: None)
  Receive Date: 20100804
  Receipt Date: 20100727
  Transmission Date: 20110219
  Serious: Yes (Hospitalization, Other)
  Sender: FDA-Public Use
  Company Number: US-BRISTOL-MYERS SQUIBB COMPANY-15219215

PATIENT
  Age: 83 Year
  Sex: Male

DRUGS (18)
  1. CARBIDOPA + LEVODOPA [Suspect]
     Indication: PARKINSON'S DISEASE
     Dosage: 1DF=10/100 UNIT NOT SPECIFIED
     Route: 048
  2. THALOMID [Suspect]
     Indication: MULTIPLE MYELOMA
     Dosage: CAPS ATBED TIME.DOSE INCREASED TO 100MG EVERY OTHERDAY.INTERRFROM 01 TO 17JUN10.
     Route: 048
     Dates: start: 20100618
  3. ASPIRIN [Concomitant]
     Dates: start: 20100201
  4. MIRALAX [Concomitant]
  5. METFORMIN HCL [Concomitant]
  6. LASIX [Concomitant]
  7. SITAGLIPTIN PHOSPHATE [Concomitant]
  8. FERGON [Concomitant]
  9. CYANOCOBALAMIN [Concomitant]
  10. DEXAMETHASONE [Concomitant]
     Dates: start: 20100201
  11. ALDACTONE [Concomitant]
     Dosage: TABLET
  12. FINASTERIDE [Concomitant]
     Dates: start: 20090101
  13. FLOMAX [Concomitant]
     Dates: start: 20100501
  14. FOLATE [Concomitant]
  15. HYDROCORTISONE [Concomitant]
  16. ZOMETA [Concomitant]
     Dates: start: 20100301
  17. PRANDIN [Concomitant]
  18. FERROUS GLUCONATE [Concomitant]
     Dates: start: 20100201

REACTIONS (4)
  - CONSTIPATION [None]
  - HYPOTENSION [None]
  - METABOLIC ENCEPHALOPATHY [None]
  - POLLAKIURIA [None]
